FAERS Safety Report 22878699 (Version 3)
Quarter: 2023Q4

REPORT INFORMATION
  Report Type: Spontaneous
  Country: US (occurrence: US)
  Receive Date: 20230829
  Receipt Date: 20231203
  Transmission Date: 20240110
  Serious: Yes (Life-Threatening, Hospitalization)
  Sender: FDA-Public Use
  Company Number: US-JNJFOC-20230857727

PATIENT
  Age: 77 Year
  Sex: Male
  Weight: 71.4 kg

DRUGS (1)
  1. STELARA [Suspect]
     Active Substance: USTEKINUMAB
     Indication: Crohn^s disease
     Route: 058
     Dates: start: 20230818

REACTIONS (5)
  - Atrial fibrillation [Recovering/Resolving]
  - Urinary retention [Recovered/Resolved]
  - Penile pain [Recovered/Resolved]
  - Hydronephrosis [Unknown]
  - Inappropriate schedule of product administration [Unknown]

NARRATIVE: CASE EVENT DATE: 20230819
